FAERS Safety Report 10708410 (Version 7)
Quarter: 2016Q2

REPORT INFORMATION
  Report Type: Spontaneous
  Country: US (occurrence: US)
  Receive Date: 20150113
  Receipt Date: 20160506
  Transmission Date: 20160815
  Serious: No
  Sender: FDA-Public Use
  Company Number: US-009507513-1412USA008174

PATIENT
  Age: 15 Year
  Sex: Female
  Weight: 113.38 kg

DRUGS (3)
  1. ELIDEL [Concomitant]
     Active Substance: PIMECROLIMUS
  2. IMPLANON [Suspect]
     Active Substance: ETONOGESTREL
     Indication: CONTRACEPTION
     Dosage: STRENGTH 68(UNIT WAS NOT PROVIDED), 1 ROD, IN LEFT ARM
     Route: 059
     Dates: start: 20110906, end: 20160120
  3. NYSTATIN. [Concomitant]
     Active Substance: NYSTATIN

REACTIONS (7)
  - Incorrect drug administration duration [Unknown]
  - Implant site hypertrophy [Not Recovered/Not Resolved]
  - Vaginal haemorrhage [Not Recovered/Not Resolved]
  - Chlamydial infection [Not Recovered/Not Resolved]
  - Weight increased [Not Recovered/Not Resolved]
  - Implant site discolouration [Not Recovered/Not Resolved]
  - Complication associated with device [Recovered/Resolved]

NARRATIVE: CASE EVENT DATE: 20110906
